FAERS Safety Report 11302848 (Version 1)
Quarter: 2015Q3

REPORT INFORMATION
  Report Type: Spontaneous
  Country: US (occurrence: None)
  Receive Date: 20150723
  Receipt Date: 20150723
  Transmission Date: 20151125
  Serious: Yes (Disabling)
  Sender: FDA-Public Use
  Company Number: None

PATIENT
  Age: 45 Year
  Sex: Female
  Weight: 62.14 kg

DRUGS (11)
  1. CYMBALTA [Suspect]
     Active Substance: DULOXETINE HYDROCHLORIDE
     Indication: DEPRESSION
     Dosage: 1 PILL
     Route: 048
     Dates: start: 20080605, end: 20150416
  2. CYMBALTA [Suspect]
     Active Substance: DULOXETINE HYDROCHLORIDE
     Indication: PAIN
     Dosage: 1 PILL
     Route: 048
     Dates: start: 20080605, end: 20150416
  3. TERBINAFINE. [Concomitant]
     Active Substance: TERBINAFINE
  4. LEXAPRO [Concomitant]
     Active Substance: ESCITALOPRAM OXALATE
  5. OSPHENA [Concomitant]
     Active Substance: OSPEMIFENE
  6. CYCLOBENZAPR [Concomitant]
  7. ATENOLOL. [Concomitant]
     Active Substance: ATENOLOL
  8. PANTOPRAZOLE [Concomitant]
     Active Substance: PANTOPRAZOLE SODIUM
  9. REMERON [Concomitant]
     Active Substance: MIRTAZAPINE
  10. PREDNISONE. [Concomitant]
     Active Substance: PREDNISONE
  11. EDA/HIST [Concomitant]

REACTIONS (8)
  - Somnolence [None]
  - Feelings of worthlessness [None]
  - Feeling abnormal [None]
  - Pain [None]
  - Fatigue [None]
  - Social avoidant behaviour [None]
  - Mobility decreased [None]
  - Suicidal ideation [None]

NARRATIVE: CASE EVENT DATE: 20080605
